FAERS Safety Report 21464877 (Version 1)
Quarter: 2022Q4

REPORT INFORMATION
  Report Type: Report from Study
  Country: HU (occurrence: CN)
  Receive Date: 20221017
  Receipt Date: 20221017
  Transmission Date: 20230113
  Serious: Yes (Hospitalization, Other)
  Sender: FDA-Public Use
  Company Number: HU-BAYER-2022A140147

PATIENT
  Sex: Male

DRUGS (3)
  1. NEXAVAR [Suspect]
     Active Substance: SORAFENIB
     Indication: Hepatic cancer
  2. HEPTODIN [Suspect]
     Active Substance: LAMIVUDINE
     Indication: Arthritis
  3. ADEFOVIR DIPIVOXIL [Suspect]
     Active Substance: ADEFOVIR DIPIVOXIL
     Indication: Hepatitis B

REACTIONS (12)
  - Abdominal discomfort [None]
  - Diarrhoea [None]
  - Nasopharyngitis [None]
  - Abdominal pain upper [None]
  - Decreased appetite [None]
  - Product complaint [None]
  - Hepatic failure [None]
  - Jaundice [None]
  - Suspected counterfeit product [None]
  - Cough [None]
  - Hydrothorax [None]
  - Hepatic function abnormal [None]

NARRATIVE: CASE EVENT DATE: 20021001
